FAERS Safety Report 15143359 (Version 1)
Quarter: 2018Q3

REPORT INFORMATION
  Report Type: Spontaneous
  Country: DE (occurrence: DE)
  Receive Date: 20180713
  Receipt Date: 20180713
  Transmission Date: 20181010
  Serious: Yes (Hospitalization, Other)
  Sender: FDA-Public Use
  Company Number: DE-AUROBINDO-AUR-APL-2018-033021

PATIENT
  Age: 67 Year
  Sex: Male
  Weight: 84 kg

DRUGS (35)
  1. JONOSTERIL                         /00351401/ [Concomitant]
     Indication: PRODUCT USED FOR UNKNOWN INDICATION
     Dosage: 2000 MILLILITER, ONCE A DAY
     Route: 042
     Dates: start: 20160407
  2. FOLINIC ACID [Suspect]
     Active Substance: LEUCOVORIN
     Dosage: 390 MILLIGRAM
     Route: 042
     Dates: start: 20160302, end: 20160329
  3. 5?FLUOROURACIL                     /00098801/ [Suspect]
     Active Substance: FLUOROURACIL
     Dosage: 6250 MILLIGRAM
     Route: 041
     Dates: start: 20160315, end: 20160331
  4. BEVACIZUMAB. [Suspect]
     Active Substance: BEVACIZUMAB
     Indication: COLORECTAL CANCER
     Dosage: 400 MILLIGRAM
     Route: 042
     Dates: start: 20160503
  5. PREDNISOLON                        /00016201/ [Concomitant]
     Active Substance: PREDNISOLONE
     Indication: MYASTHENIA GRAVIS
     Dosage: 5 MILLIGRAM, ONCE A DAY
     Route: 048
  6. TEPILTA                            /00115701/ [Concomitant]
     Indication: PRODUCT USED FOR UNKNOWN INDICATION
     Dosage: 30 MILLILITER, ONCE A DAY
     Route: 048
     Dates: start: 20160407
  7. IRINOTECAN [Suspect]
     Active Substance: IRINOTECAN
     Dosage: 240 MILLIGRAM
     Route: 042
     Dates: start: 20160419, end: 20160503
  8. IRINOTECAN [Suspect]
     Active Substance: IRINOTECAN
     Dosage: 320 MILLIGRAM
     Route: 042
     Dates: start: 20160302, end: 20160329
  9. PYRIDOSTIGMINE [Concomitant]
     Active Substance: PYRIDOSTIGMINE
     Indication: MYASTHENIA GRAVIS
     Dosage: 120 MILLIGRAM, ONCE A DAY
     Route: 048
  10. NOVAMINSULFON [Concomitant]
     Active Substance: METAMIZOLE
     Indication: MYASTHENIA GRAVIS
     Dosage: 500 MILLIGRAM
     Route: 048
  11. DIHYDROERGOTAMINE [Concomitant]
     Active Substance: DIHYDROERGOTAMINE
     Indication: PRODUCT USED FOR UNKNOWN INDICATION
     Dosage: 30000 INTERNATIONAL UNIT/KILOGRAM, ONCE A DAY
     Route: 065
     Dates: start: 20160406
  12. GLANDOMED [Concomitant]
     Indication: PRODUCT USED FOR UNKNOWN INDICATION
     Dosage: UNK
     Route: 048
  13. FOLINIC ACID [Suspect]
     Active Substance: LEUCOVORIN
     Indication: COLORECTAL CANCER
     Dosage: 290 MILLIGRAM
     Route: 042
     Dates: start: 20160503, end: 20160503
  14. FOLINIC ACID [Suspect]
     Active Substance: LEUCOVORIN
     Dosage: 2900 MILLIGRAM
     Route: 042
     Dates: start: 20160419, end: 20160419
  15. 5?FLUOROURACIL                     /00098801/ [Suspect]
     Active Substance: FLUOROURACIL
     Indication: COLORECTAL CANCER
     Dosage: 4450 MILLIGRAM
     Route: 041
     Dates: start: 20160531, end: 20160811
  16. 5?FLUOROURACIL                     /00098801/ [Suspect]
     Active Substance: FLUOROURACIL
     Dosage: 4700 MILLIGRAM
     Route: 041
     Dates: start: 20160419, end: 20160505
  17. PANTOPRAZOL                        /01263201/ [Concomitant]
     Active Substance: PANTOPRAZOLE
     Indication: MYASTHENIA GRAVIS
     Dosage: 20 MILLIGRAM, ONCE A DAY
     Route: 048
  18. VIGANTOLETTEN [Concomitant]
     Active Substance: CHOLECALCIFEROL
     Indication: MYASTHENIA GRAVIS
     Dosage: 1000 INTERNATIONAL UNIT, ONCE A DAY
     Route: 048
  19. OXALIPLATIN. [Suspect]
     Active Substance: OXALIPLATIN
     Dosage: 120 MILLIGRAM
     Route: 042
     Dates: start: 20160531, end: 20160809
  20. BEVACIZUMAB. [Suspect]
     Active Substance: BEVACIZUMAB
     Dosage: 400 MILLIGRAM
     Route: 042
     Dates: start: 20160329, end: 20160329
  21. L?THYROXIN                         /00068001/ [Concomitant]
     Active Substance: LEVOTHYROXINE
     Indication: HYPOTHYROIDISM
     Dosage: 100 MICROGRAM, ONCE A DAY
     Route: 048
  22. AZATHIOPRIN [Concomitant]
     Active Substance: AZATHIOPRINE
     Indication: MYASTHENIA GRAVIS
     Dosage: 200 MILLIGRAM, ONCE A DAY
     Route: 048
  23. OXALIPLATIN. [Suspect]
     Active Substance: OXALIPLATIN
     Dosage: 125 MILLIGRAM
     Route: 042
     Dates: start: 20160419, end: 20160503
  24. 5?FLUOROURACIL                     /00098801/ [Suspect]
     Active Substance: FLUOROURACIL
     Dosage: 6300 MILLIGRAM
     Route: 041
     Dates: start: 20160302, end: 20160304
  25. SIMVASTATIN. [Concomitant]
     Active Substance: SIMVASTATIN
     Indication: HYPERTENSION
     Dosage: 40 MILLIGRAM, ONCE A DAY
     Route: 048
  26. IRINOTECAN [Suspect]
     Active Substance: IRINOTECAN
     Indication: COLORECTAL CANCER
     Dosage: 220 MILLIGRAM
     Route: 042
     Dates: start: 20160531, end: 20160809
  27. FOLINIC ACID [Suspect]
     Active Substance: LEUCOVORIN
     Dosage: 280 MILLIGRAM
     Route: 042
     Dates: start: 20160531, end: 20160809
  28. OXALIPLATIN. [Suspect]
     Active Substance: OXALIPLATIN
     Indication: COLORECTAL CANCER
     Dosage: 165 MILLIGRAM
     Route: 042
     Dates: start: 20160302, end: 20160329
  29. AMPHO MORONAL [Concomitant]
     Active Substance: AMPHOTERICIN B
     Indication: PRODUCT USED FOR UNKNOWN INDICATION
     Dosage: 4 UNK, ONCE A DAY
     Route: 048
     Dates: start: 20160407
  30. FOLINIC ACID [Suspect]
     Active Substance: LEUCOVORIN
     Dosage: UNK
  31. BEVACIZUMAB. [Suspect]
     Active Substance: BEVACIZUMAB
     Dosage: 425 UNK, SOLUTION FOR INFUSION
     Route: 042
     Dates: start: 20160302
  32. RAMIPRIL. [Concomitant]
     Active Substance: RAMIPRIL
     Indication: HYPERTENSION
     Dosage: 2.5 MILLIGRAM, ONCE A DAY
     Route: 048
  33. ASPIRIN. [Concomitant]
     Active Substance: ASPIRIN
     Indication: HYPERTENSION
     Dosage: 100 MILLIGRAM, ONCE A DAY
     Route: 048
  34. MACROGOL [Concomitant]
     Active Substance: POLYETHYLENE GLYCOLS
     Indication: PRODUCT USED FOR UNKNOWN INDICATION
     Dosage: 3 UNK, ONCE A DAY
     Route: 048
  35. EMBOLEX [Concomitant]
     Active Substance: DIHYDROERGOTAMINE MESYLATE\HEPARIN SODIUM\LIDOCAINE HYDROCHLORIDE
     Indication: PRODUCT USED FOR UNKNOWN INDICATION
     Dosage: 30000 INTERNATIONAL UNIT
     Route: 058
     Dates: start: 20160406

REACTIONS (4)
  - Pulpitis dental [Recovered/Resolved]
  - Mucosal inflammation [Recovered/Resolved]
  - Anaemia [Recovered/Resolved]
  - Leukopenia [Recovered/Resolved]

NARRATIVE: CASE EVENT DATE: 20160406
